FAERS Safety Report 4877265-5 (Version None)
Quarter: 2006Q1

REPORT INFORMATION
  Report Type: 
  Country: None (occurrence: None)
  Receive Date: 20060109
  Receipt Date: 20060109
  Transmission Date: 20060701
  Serious: Yes (Life-Threatening)
  Sender: FDA-Public Use
  Company Number: None

PATIENT
  Sex: Male
  Weight: 95 kg

DRUGS (3)
  1. ZOSYN [Suspect]
     Indication: OSTEOMYELITIS
     Dosage: 3.375G Q 6H
     Dates: start: 20051006
  2. ZOSYN [Suspect]
     Indication: OSTEOMYELITIS
     Dosage: 3.375G Q 6H
     Dates: start: 20051012
  3. VANCOMYCIN [Concomitant]

REACTIONS (1)
  - NEUTROPENIA [None]
